FAERS Safety Report 8353096-9 (Version None)
Quarter: 2012Q2

REPORT INFORMATION
  Report Type: 
  Country: None (occurrence: None)
  Receive Date: 20120511
  Receipt Date: 20120507
  Transmission Date: 20120825
  Serious: Yes (Other)
  Sender: FDA-Public Use
  Company Number: US-ASTRAZENECA-2011SE32259

PATIENT
  Age: 54 Year
  Sex: Female

DRUGS (19)
  1. NEXIUM [Suspect]
     Route: 048
     Dates: start: 20030630
  2. ESTRATEST [Concomitant]
     Dates: start: 20060901
  3. FLUCONAZOLE [Concomitant]
     Dates: start: 20100904
  4. NEXIUM [Suspect]
     Route: 048
     Dates: start: 20090211
  5. CYCLOBENZAPRINE [Concomitant]
     Dates: start: 20060719
  6. SULFAMETHOXAZOLE AND TRIMETHOPRIM [Concomitant]
     Dates: start: 20061204
  7. NEXIUM [Suspect]
     Route: 048
     Dates: start: 20060730
  8. ZEGERID [Concomitant]
     Dates: start: 20070510
  9. NEXIUM [Suspect]
     Route: 048
     Dates: start: 20030630
  10. CEPHALEXIN [Concomitant]
     Dates: start: 20060925
  11. ACETAMINOPHEN/COD [Concomitant]
     Dates: start: 20061002
  12. NEXIUM [Suspect]
     Indication: DYSPEPSIA
     Route: 048
     Dates: start: 20010101
  13. OXYPROZINE [Concomitant]
  14. PREDNISONE [Concomitant]
     Dates: start: 20090102
  15. HYDROCODONE BITARTRATE AND ACETAMINOPHEN [Concomitant]
     Dosage: 7.5/750
     Dates: start: 20061026
  16. NEXIUM [Suspect]
     Indication: GASTROOESOPHAGEAL REFLUX DISEASE
     Route: 048
     Dates: start: 20010101
  17. NEXIUM [Suspect]
     Route: 048
     Dates: start: 20060730
  18. NEXIUM [Suspect]
     Route: 048
     Dates: start: 20090211
  19. HYDROCODONE BITARTRATE AND IBUPROFEN [Concomitant]
     Dates: start: 20060418

REACTIONS (7)
  - BONE DISORDER [None]
  - BLINDNESS [None]
  - FOOT FRACTURE [None]
  - INTERVERTEBRAL DISC DEGENERATION [None]
  - HERNIA [None]
  - VISION BLURRED [None]
  - CATARACT [None]
